FAERS Safety Report 25278131 (Version 5)
Quarter: 2025Q2

REPORT INFORMATION
  Report Type: Spontaneous
  Country: US (occurrence: US)
  Receive Date: 20250507
  Receipt Date: 20250609
  Transmission Date: 20250717
  Serious: No
  Sender: PFIZER
  Company Number: US-PFIZER INC-202500090710

PATIENT
  Age: 13 Year
  Sex: Male

DRUGS (3)
  1. GENOTROPIN [Suspect]
     Active Substance: SOMATROPIN
     Indication: Hypopituitarism
  2. GENOTROPIN [Suspect]
     Active Substance: SOMATROPIN
     Indication: Growth hormone deficiency
     Dosage: ALTERNATE INJECTING 1.8MG AND 2MG SC EVERY OTHER DAY FOR 6 DAYS PER WEEK
     Route: 058
  3. GENOTROPIN [Suspect]
     Active Substance: SOMATROPIN
     Dosage: ALTERNATE INJECTING 1.8MG AND 2MG SC EVERY OTHER DAY FOR 6 DAYS PER WEEK
     Route: 058

REACTIONS (2)
  - Device material issue [Unknown]
  - Drug dose omission by device [Unknown]
